FAERS Safety Report 5788485-X (Version None)
Quarter: 2008Q2

REPORT INFORMATION
  Report Type: 
  Country: None (occurrence: None)
  Receive Date: 20080625
  Receipt Date: 20080625
  Transmission Date: 20081010
  Serious: Yes (Other)
  Sender: FDA-Public Use
  Company Number: None

PATIENT
  Sex: Female
  Weight: 65.7716 kg

DRUGS (2)
  1. DIGITEK 0.25 MG BERTEK [Suspect]
     Indication: ATRIAL FIBRILLATION
     Dosage: 0.25 DAILY DAILY MOUTH
     Route: 048
     Dates: start: 20080218, end: 20080510
  2. DIGITEK 0.25 MG BERTEK [Suspect]
     Indication: CARDIAC FAILURE
     Dosage: 0.25 DAILY DAILY MOUTH
     Route: 048
     Dates: start: 20080218, end: 20080510

REACTIONS (4)
  - ASTHENIA [None]
  - CARDIOACTIVE DRUG LEVEL INCREASED [None]
  - FATIGUE [None]
  - HEART RATE DECREASED [None]
